FAERS Safety Report 5217963-7 (Version None)
Quarter: 2007Q1

REPORT INFORMATION
  Report Type: 
  Country: None (occurrence: None)
  Receive Date: 20070124
  Receipt Date: 20070117
  Transmission Date: 20070707
  Serious: Yes (Death, Other)
  Sender: FDA-Public Use
  Company Number: PHEH2006US06845

PATIENT
  Age: 37 Year
  Sex: Female

DRUGS (7)
  1. ZOMETA [Suspect]
     Indication: METASTASES TO BONE
     Dosage: 4 MGM, EVERY 4 WEEKS
     Dates: start: 20050318, end: 20050708
  2. STEROIDS NOS [Concomitant]
     Indication: LUNG DISORDER
     Dosage: 20 MG, QD
  3. TAXOTERE [Concomitant]
     Indication: BREAST CANCER METASTATIC
     Dosage: 60 MG DAY 1 + 8 Q 3 WEEKS
     Dates: start: 20050315, end: 20050524
  4. XELODA [Concomitant]
     Indication: BREAST CANCER METASTATIC
     Dosage: 1500 MG X 14 DAYS EVERY 3 WEEKS
     Dates: start: 20050315, end: 20050524
  5. ZOFRAN [Concomitant]
     Indication: ANTIEMETIC SUPPORTIVE CARE
     Dates: start: 20050315, end: 20060621
  6. GEMZAR [Concomitant]
     Indication: BREAST CANCER METASTATIC
     Dosage: 2000 MG WEEKLY X 3 THEN 1 WK OFF EVERY 4 WKS
     Dates: start: 20050609, end: 20050712
  7. NAVELBINE [Concomitant]
     Indication: BREAST CANCER METASTATIC
     Dosage: 28 MG WEEKLY X 3 THEN 1 WK OFF Q 4 WKS
     Dates: start: 20060518, end: 20060621

REACTIONS (13)
  - ANAEMIA [None]
  - BIOPSY MUCOSA ABNORMAL [None]
  - BONE DISORDER [None]
  - MALIGNANT NEOPLASM PROGRESSION [None]
  - ORAL SOFT TISSUE DISORDER [None]
  - ORAL SURGERY [None]
  - OSTEOMYELITIS [None]
  - OSTEONECROSIS [None]
  - PAIN IN JAW [None]
  - TOOTH ABSCESS [None]
  - TOOTH EXTRACTION [None]
  - TOOTH INFECTION [None]
  - TOOTHACHE [None]
